FAERS Safety Report 6375543-4 (Version None)
Quarter: 2009Q3

REPORT INFORMATION
  Report Type: 
  Country: None (occurrence: None)
  Receive Date: 20090924
  Receipt Date: 20090914
  Transmission Date: 20100115
  Serious: Yes (Other)
  Sender: FDA-Public Use
  Company Number: CH-GENENTECH-290692

PATIENT
  Age: 49 Year
  Sex: Male

DRUGS (2)
  1. RITUXIMAB [Suspect]
     Indication: TRANSPLANT REJECTION
     Dosage: 375 MG/M2, UNK
     Route: 065
  2. IMMUNE GLOBULIN INTRAVENOUS (HUMAN) [Suspect]
     Indication: TRANSPLANT REJECTION
     Dosage: 400 MG/KG, QD
     Route: 042

REACTIONS (2)
  - GRAFT DYSFUNCTION [None]
  - TRANSPLANT REJECTION [None]
